FAERS Safety Report 9401478 (Version 3)
Quarter: 2013Q3

REPORT INFORMATION
  Report Type: Spontaneous
  Country: CA (occurrence: CA)
  Receive Date: 20130716
  Receipt Date: 20130808
  Transmission Date: 20140515
  Serious: Yes (Other)
  Sender: FDA-Public Use
  Company Number: CA-ROCHE-1248298

PATIENT
  Age: 44 Year
  Sex: Male

DRUGS (4)
  1. XOLAIR [Suspect]
     Indication: ASTHMA
     Route: 058
     Dates: start: 20130610
  2. SPIRIVA [Concomitant]
  3. MONTELUKAST [Concomitant]
  4. NASONEX [Concomitant]

REACTIONS (7)
  - Hypertension [Unknown]
  - Wheezing [Unknown]
  - Pulmonary mass [Recovered/Resolved]
  - Non-cardiac chest pain [Unknown]
  - Pulmonary function test abnormal [Unknown]
  - Musculoskeletal pain [Unknown]
  - Asthma [Recovered/Resolved]
